FAERS Safety Report 11939179 (Version 2)
Quarter: 2016Q1

REPORT INFORMATION
  Report Type: Spontaneous
  Country: BR (occurrence: BR)
  Receive Date: 20160122
  Receipt Date: 20160315
  Transmission Date: 20160526
  Serious: Yes (Death, Other)
  Sender: FDA-Public Use
  Company Number: BR-PFIZER INC-2014225111

PATIENT
  Age: 76 Year
  Sex: Male

DRUGS (4)
  1. SUTENT [Suspect]
     Active Substance: SUNITINIB MALATE
     Dosage: 12.5 MG, CYCLIC (ONE PER ONE)
     Route: 048
     Dates: end: 201511
  2. SUTENT [Suspect]
     Active Substance: SUNITINIB MALATE
     Dosage: 12.5MG ON ALTERNATE DAY
     Route: 048
  3. SUTENT [Suspect]
     Active Substance: SUNITINIB MALATE
     Indication: GASTROINTESTINAL STROMAL TUMOUR
     Dosage: 37.5 MG, CONTINUOUS (DAILY)
     Route: 048
     Dates: start: 20140615, end: 20140730
  4. SUTENT [Suspect]
     Active Substance: SUNITINIB MALATE
     Dosage: 37.5 MG, DAILY
     Route: 048
     Dates: start: 20140810

REACTIONS (11)
  - Skin discolouration [Unknown]
  - Dysgeusia [Unknown]
  - White blood cell disorder [Recovered/Resolved]
  - Death [Fatal]
  - Hypoaesthesia oral [Recovering/Resolving]
  - Liver disorder [Unknown]
  - Ageusia [Unknown]
  - Nail discolouration [Unknown]
  - Cerebrovascular accident [Unknown]
  - Blood iron decreased [Unknown]
  - Weight decreased [Unknown]

NARRATIVE: CASE EVENT DATE: 2014
